FAERS Safety Report 7947042-7 (Version None)
Quarter: 2011Q4

REPORT INFORMATION
  Report Type: 
  Country: None (occurrence: None)
  Receive Date: 20111129
  Receipt Date: 20110930
  Transmission Date: 20120403
  Serious: No
  Sender: FDA-Public Use
  Company Number: US-ASTRAZENECA-2011SE58964

PATIENT
  Age: 19 Year
  Sex: Female

DRUGS (1)
  1. VIMOVO [Suspect]
     Indication: PAIN
     Dosage: 500 MG/20 MG TWO TIMES A DAY
     Route: 048
     Dates: start: 20110901

REACTIONS (3)
  - PARAESTHESIA [None]
  - OESOPHAGEAL DISORDER [None]
  - HYPOAESTHESIA [None]
